FAERS Safety Report 5898786-2 (Version None)
Quarter: 2008Q3

REPORT INFORMATION
  Report Type: 
  Country: None (occurrence: None)
  Receive Date: 20080925
  Receipt Date: 20080703
  Transmission Date: 20090109
  Serious: Yes (Hospitalization)
  Sender: FDA-Public Use
  Company Number: A0732958A

PATIENT
  Age: 79 Year
  Sex: Female
  Weight: 58.6 kg

DRUGS (2)
  1. WELLBUTRIN [Suspect]
     Indication: DRUG USE FOR UNKNOWN INDICATION
     Dosage: 150MG PER DAY
     Route: 048
     Dates: start: 20050912
  2. CELEBREX [Suspect]
     Dosage: 200MG PER DAY
     Route: 048
     Dates: start: 20050912

REACTIONS (2)
  - HYPERSENSITIVITY [None]
  - RASH [None]
